FAERS Safety Report 9344741 (Version 1)
Quarter: 2013Q2

REPORT INFORMATION
  Report Type: Spontaneous
  Country: AU (occurrence: AU)
  Receive Date: 20130612
  Receipt Date: 20130612
  Transmission Date: 20140414
  Serious: Yes (Hospitalization, Other)
  Sender: FDA-Public Use
  Company Number: AU-VERTEX PHARMACEUTICALS INC-2013-006994

PATIENT
  Age: 58 Year
  Sex: Female
  Weight: 63 kg

DRUGS (8)
  1. INCIVO [Suspect]
     Indication: HEPATITIS C
     Dosage: 2 DF, TID
     Route: 048
     Dates: start: 20130421, end: 20130609
  2. RIBAVIRIN [Suspect]
     Indication: HEPATITIS C
     Dosage: DOSAGE FORM: UNSPECIFIED
     Route: 065
     Dates: start: 20130531
  3. RIBAVIRIN [Suspect]
     Dosage: DOSAGE FORM: UNSPECIFIED
     Route: 065
     Dates: start: 20130421
  4. RIBAVIRIN [Suspect]
     Dosage: DOSAGE FORM: UNSPECIFIED
     Route: 065
     Dates: start: 20130605, end: 20130609
  5. PEGASYS [Concomitant]
     Indication: HEPATITIS C
     Route: 058
     Dates: start: 20130421, end: 20130609
  6. PANADEINE [Concomitant]
     Indication: HEADACHE
     Dosage: DOSAGE FORM: TABLET, 500/15 MG
  7. ZOPICLONE [Concomitant]
     Indication: INSOMNIA
  8. LEXAPRO [Concomitant]
     Indication: DEPRESSION
     Dosage: 40 MG, QD

REACTIONS (5)
  - Dyspnoea exertional [Unknown]
  - Haemoglobin decreased [Recovered/Resolved]
  - Anxiety [Unknown]
  - Headache [Unknown]
  - Nausea [Unknown]
